FAERS Safety Report 11294546 (Version 1)
Quarter: 2015Q3

REPORT INFORMATION
  Report Type: Spontaneous
  Country: US (occurrence: None)
  Receive Date: 20150721
  Receipt Date: 20150721
  Transmission Date: 20151125
  Serious: Yes (Life-Threatening)
  Sender: FDA-Public Use
  Company Number: ONY-2015-005

PATIENT
  Weight: 1.5 kg

DRUGS (1)
  1. INFASURF [Suspect]
     Active Substance: CALFACTANT

REACTIONS (1)
  - Cardio-respiratory arrest [None]
